FAERS Safety Report 13226499 (Version 2)
Quarter: 2017Q3

REPORT INFORMATION
  Report Type: Spontaneous
  Country: US (occurrence: US)
  Receive Date: 20170213
  Receipt Date: 20170718
  Transmission Date: 20171127
  Serious: No
  Sender: FDA-Public Use
  Company Number: US-VANDA PHARMACEUTICALS, INC-2016TASUS001455

PATIENT
  Age: 54 Year
  Sex: Female

DRUGS (1)
  1. HETLIOZ [Suspect]
     Active Substance: TASIMELTEON
     Dosage: 20 MG, Q24H, 1 HOUR BEFORE BED
     Route: 048
     Dates: start: 201412

REACTIONS (15)
  - Back pain [Unknown]
  - Depressed mood [Unknown]
  - Incorrect dose administered [Unknown]
  - Dizziness postural [Unknown]
  - Nausea [Unknown]
  - Anxiety [Unknown]
  - Sensory disturbance [Unknown]
  - Drug dose omission [Unknown]
  - Initial insomnia [Unknown]
  - Feeling abnormal [Unknown]
  - Therapeutic response unexpected [Unknown]
  - Vertigo [Unknown]
  - Pain [Unknown]
  - Disturbance in attention [Unknown]
  - Wrong technique in product usage process [Unknown]

NARRATIVE: CASE EVENT DATE: 20161122
